FAERS Safety Report 16217508 (Version 1)
Quarter: 2019Q2

REPORT INFORMATION
  Report Type: Spontaneous
  Country: US (occurrence: US)
  Receive Date: 20190419
  Receipt Date: 20190419
  Transmission Date: 20190711
  Serious: Yes (Other)
  Sender: FDA-Public Use
  Company Number: US-CHURCH + DWIGHT CO., INC.-2066043

PATIENT
  Age: 70 Year
  Sex: Female

DRUGS (1)
  1. VITAFUSION WOMEN^S COMPLETE GUMMY VITAMINS [Suspect]
     Active Substance: VITAMINS
     Route: 048

REACTIONS (1)
  - Renal failure [Unknown]
